FAERS Safety Report 12609299 (Version 3)
Quarter: 2016Q3

REPORT INFORMATION
  Report Type: Spontaneous
  Country: DE (occurrence: DE)
  Receive Date: 20160801
  Receipt Date: 20160812
  Transmission Date: 20161109
  Serious: Yes (Hospitalization, Other)
  Sender: FDA-Public Use
  Company Number: DE-AUROBINDO-AUR-APL-2016-09642

PATIENT
  Age: 43 Year
  Sex: Female

DRUGS (3)
  1. RAMIPRIL PUREN COMP 5 MG/25 MG TABLETS [Suspect]
     Active Substance: RAMIPRIL
     Indication: HYPERTENSION
     Dosage: 1 DF, ONCE A DAY
     Route: 048
     Dates: start: 201510, end: 20160701
  2. LEVONORGESTREL AND ETINILESTRADIOL [Concomitant]
     Indication: ORAL CONTRACEPTION
     Dosage: UNK
     Route: 048
     Dates: start: 2008, end: 20160701
  3. RAMIPRIL-ISIS 5 MG TABLETS [Suspect]
     Active Substance: RAMIPRIL
     Indication: HYPERTENSION
     Dosage: 5 MG, ONCE A DAY
     Route: 048
     Dates: start: 201510, end: 20160701

REACTIONS (4)
  - Muscle spasms [Recovered/Resolved]
  - Fluid retention [Recovered/Resolved]
  - Abdominal distension [Recovered/Resolved]
  - Abdominal adhesions [Recovered/Resolved]

NARRATIVE: CASE EVENT DATE: 201510
